FAERS Safety Report 5899791-2 (Version None)
Quarter: 2008Q3

REPORT INFORMATION
  Report Type: 
  Country: None (occurrence: None)
  Receive Date: 20080926
  Receipt Date: 20080919
  Transmission Date: 20090109
  Serious: Yes (Other)
  Sender: FDA-Public Use
  Company Number: TR-BAXTER-2008BH009952

PATIENT
  Age: 38 Year
  Sex: Female
  Weight: 54 kg

DRUGS (1)
  1. LACTATED RINGER'S AND DEXTROSE 5% IN PLASTIC CONTAINER [Suspect]
     Indication: PREOPERATIVE CARE
     Route: 042
     Dates: start: 20080909, end: 20080910

REACTIONS (4)
  - CHILLS [None]
  - FEELING COLD [None]
  - MUSCLE SPASMS [None]
  - PYREXIA [None]
